FAERS Safety Report 6198708-3 (Version None)
Quarter: 2009Q2

REPORT INFORMATION
  Report Type: 
  Country: None (occurrence: None)
  Receive Date: 20090521
  Receipt Date: 20090514
  Transmission Date: 20091009
  Serious: Yes (Other)
  Sender: FDA-Public Use
  Company Number: PHEH2008US02320

PATIENT
  Sex: Female

DRUGS (5)
  1. ZOMETA [Suspect]
     Dosage: UNK
     Dates: end: 20041201
  2. METHADONE [Concomitant]
  3. ROCEPHIN [Concomitant]
  4. PROZAC [Concomitant]
  5. PROCRIT                            /00909301/ [Concomitant]

REACTIONS (13)
  - ANAEMIA [None]
  - BONE DISORDER [None]
  - CELLULITIS [None]
  - DEBRIDEMENT [None]
  - DEPRESSION [None]
  - GENERAL PHYSICAL CONDITION ABNORMAL [None]
  - INFECTION [None]
  - NEUROPATHY PERIPHERAL [None]
  - OSTEOMYELITIS [None]
  - OSTEONECROSIS [None]
  - PAIN [None]
  - SWELLING [None]
  - WOUND DECOMPOSITION [None]
